FAERS Safety Report 7511494-7 (Version None)
Quarter: 2011Q2

REPORT INFORMATION
  Report Type: 
  Country: None (occurrence: None)
  Receive Date: 20110531
  Receipt Date: 20101111
  Transmission Date: 20111010
  Serious: No
  Sender: FDA-Public Use
  Company Number: US-NOVEN-ALL1-2010-05943

PATIENT
  Sex: Female
  Weight: 45.351 kg

DRUGS (1)
  1. DAYTRANA [Suspect]
     Dosage: 15 MG, 1X/DAY:QD
     Route: 062
     Dates: start: 20101104

REACTIONS (4)
  - MOOD SWINGS [None]
  - VISION BLURRED [None]
  - DIZZINESS [None]
  - ABDOMINAL PAIN [None]
